FAERS Safety Report 11169678 (Version 2)
Quarter: 2015Q3

REPORT INFORMATION
  Report Type: Spontaneous
  Country: BR (occurrence: BR)
  Receive Date: 20150605
  Receipt Date: 20150702
  Transmission Date: 20151125
  Serious: Yes (Other)
  Sender: FDA-Public Use
  Company Number: PHHY2015BR067416

PATIENT
  Age: 54 Year
  Sex: Female
  Weight: 73 kg

DRUGS (1)
  1. DIOVAN AMLO FIX [Suspect]
     Active Substance: AMLODIPINE\VALSARTAN
     Indication: HYPERTENSION
     Dosage: QD, ONCE IN THE MORNING
     Route: 048

REACTIONS (4)
  - Angiopathy [Recovering/Resolving]
  - Pain in extremity [Recovering/Resolving]
  - Product packaging issue [Unknown]
  - Varicose vein [Recovering/Resolving]

NARRATIVE: CASE EVENT DATE: 20150601
